FAERS Safety Report 19916287 (Version 2)
Quarter: 2021Q4

REPORT INFORMATION
  Report Type: Spontaneous
  Country: EG (occurrence: EG)
  Receive Date: 20211005
  Receipt Date: 20211013
  Transmission Date: 20220303
  Serious: Yes (Hospitalization)
  Sender: FDA-Public Use
  Company Number: EG-NOVOPROD-851752

PATIENT
  Age: 855 Month
  Sex: Male
  Weight: 101 kg

DRUGS (2)
  1. INSULIN HUMAN [Suspect]
     Active Substance: INSULIN HUMAN
     Indication: Diabetes mellitus
     Dosage: 35U MORNING  - 15U EVENING
     Route: 058
  2. INSULIN HUMAN [Suspect]
     Active Substance: INSULIN HUMAN
     Dosage: UNK (DIFFERENT DOSE)
     Route: 058

REACTIONS (1)
  - Coronary arterial stent insertion [Recovered/Resolved]
